FAERS Safety Report 8507630-6 (Version None)
Quarter: 2012Q3

REPORT INFORMATION
  Report Type: 
  Country: None (occurrence: None)
  Receive Date: 20120713
  Receipt Date: 20120705
  Transmission Date: 20120928
  Serious: No
  Sender: FDA-Public Use
  Company Number: US-BIOGENIDEC-2012BI023537

PATIENT
  Sex: Female

DRUGS (3)
  1. AVONEX [Concomitant]
     Indication: MULTIPLE SCLEROSIS
     Route: 030
  2. TYSABRI [Suspect]
     Indication: MULTIPLE SCLEROSIS
     Route: 042
     Dates: start: 20071108, end: 20091208
  3. TYSABRI [Suspect]
     Route: 042
     Dates: start: 20110930, end: 20120401

REACTIONS (17)
  - HEAT EXHAUSTION [None]
  - HYPERTENSION [None]
  - MEMORY IMPAIRMENT [None]
  - VERTIGO [None]
  - TREMOR [None]
  - FACE INJURY [None]
  - BALANCE DISORDER [None]
  - MULTIPLE SCLEROSIS [None]
  - FALL [None]
  - GAIT DISTURBANCE [None]
  - COORDINATION ABNORMAL [None]
  - HEART RATE DECREASED [None]
  - OPTIC NERVE DISORDER [None]
  - EXCORIATION [None]
  - EYE DISORDER [None]
  - COGNITIVE DISORDER [None]
  - MOBILITY DECREASED [None]
